FAERS Safety Report 11528214 (Version 1)
Quarter: 2015Q3

REPORT INFORMATION
  Report Type: Spontaneous
  Country: JP (occurrence: JP)
  Receive Date: 20150921
  Receipt Date: 20150921
  Transmission Date: 20151125
  Serious: Yes (Death, Other)
  Sender: FDA-Public Use
  Company Number: JP-ACCORD-033738

PATIENT
  Age: 55 Year
  Sex: Male

DRUGS (3)
  1. CISPLATIN. [Suspect]
     Active Substance: CISPLATIN
     Indication: NASOPHARYNGEAL CANCER
  2. DOCETAXEL. [Suspect]
     Active Substance: DOCETAXEL
     Indication: NASOPHARYNGEAL CANCER
  3. FLUOROURACIL. [Suspect]
     Active Substance: FLUOROURACIL
     Indication: NASOPHARYNGEAL CANCER

REACTIONS (6)
  - Febrile neutropenia [Fatal]
  - Cytomegalovirus infection [Unknown]
  - Acute respiratory distress syndrome [Fatal]
  - Pneumonia staphylococcal [Fatal]
  - Shock [Unknown]
  - Enteritis [Fatal]
